FAERS Safety Report 10977596 (Version 1)
Quarter: 2015Q2

REPORT INFORMATION
  Report Type: Spontaneous
  Country: GB (occurrence: GB)
  Receive Date: 20150402
  Receipt Date: 20150402
  Transmission Date: 20150821
  Serious: Yes (Other)
  Sender: FDA-Public Use
  Company Number: GB-JNJFOC-20150316131

PATIENT
  Age: 3 Year
  Sex: Male
  Weight: 14 kg

DRUGS (3)
  1. LACTULOSE. [Concomitant]
     Active Substance: LACTULOSE
     Indication: PRODUCT USED FOR UNKNOWN INDICATION
     Dates: start: 20150302, end: 20150312
  2. AMETOP (TETRACAINE) [Concomitant]
     Indication: PRODUCT USED FOR UNKNOWN INDICATION
     Dosage: AS DIRECTED
     Route: 065
     Dates: start: 20150109, end: 20150110
  3. IBUPROFEN. [Suspect]
     Active Substance: IBUPROFEN
     Indication: PRODUCT USED FOR UNKNOWN INDICATION
     Route: 065
     Dates: start: 20150305

REACTIONS (2)
  - Lip swelling [Recovered/Resolved]
  - Eyelid oedema [Unknown]

NARRATIVE: CASE EVENT DATE: 20150312
